FAERS Safety Report 17574492 (Version 1)
Quarter: 2020Q1

REPORT INFORMATION
  Report Type: Spontaneous
  Country: US (occurrence: US)
  Receive Date: 20200324
  Receipt Date: 20200324
  Transmission Date: 20200409
  Serious: No
  Sender: FDA-Public Use
  Company Number: US-CIPLA LTD.-2019US01570

PATIENT

DRUGS (1)
  1. SERTRALINE [Suspect]
     Active Substance: SERTRALINE HYDROCHLORIDE
     Indication: PREMATURE EJACULATION
     Dosage: 50 MILLIGRAM, QD (ONCE DAILY)
     Route: 048
     Dates: start: 20190315

REACTIONS (3)
  - Off label use [Unknown]
  - Product prescribing error [Unknown]
  - Product use in unapproved indication [Unknown]
